FAERS Safety Report 18506976 (Version 2)
Quarter: 2020Q4

REPORT INFORMATION
  Report Type: Report from Study
  Country: US (occurrence: US)
  Receive Date: 20201116
  Receipt Date: 20201126
  Transmission Date: 20210114
  Serious: Yes (Death, Hospitalization, Other)
  Sender: FDA-Public Use
  Company Number: US-SHIRE-US202026597

PATIENT
  Age: 67 Year
  Sex: Male

DRUGS (12)
  1. TEDUGLUTIDE [Suspect]
     Active Substance: TEDUGLUTIDE
     Dosage: 3.39 UNIT: UNKNOWN, QD
     Route: 058
     Dates: start: 20161028, end: 20200902
  2. TEDUGLUTIDE [Suspect]
     Active Substance: TEDUGLUTIDE
     Indication: SHORT-BOWEL SYNDROME
     Dosage: 5 MILLIGRAM, QD
     Route: 058
     Dates: start: 20181229, end: 20201016
  3. TEDUGLUTIDE [Suspect]
     Active Substance: TEDUGLUTIDE
     Indication: SHORT-BOWEL SYNDROME
     Dosage: 5 MILLIGRAM, QD
     Route: 058
     Dates: start: 20181229, end: 20201016
  4. TEDUGLUTIDE [Suspect]
     Active Substance: TEDUGLUTIDE
     Dosage: 0.500 (UNIT UNKNOWN), QD
     Route: 058
     Dates: start: 20190107
  5. TEDUGLUTIDE [Suspect]
     Active Substance: TEDUGLUTIDE
     Dosage: 3.39 UNIT: UNKNOWN, QD
     Route: 058
     Dates: start: 20161028, end: 20200902
  6. TEDUGLUTIDE [Suspect]
     Active Substance: TEDUGLUTIDE
     Dosage: 3.39 UNIT: UNKNOWN, QD
     Route: 058
     Dates: start: 20161028, end: 20200902
  7. TEDUGLUTIDE [Suspect]
     Active Substance: TEDUGLUTIDE
     Indication: SHORT-BOWEL SYNDROME
     Dosage: 5 MILLIGRAM, QD
     Route: 058
     Dates: start: 20181229, end: 20201016
  8. TEDUGLUTIDE [Suspect]
     Active Substance: TEDUGLUTIDE
     Dosage: 0.500 (UNIT UNKNOWN), QD
     Route: 058
     Dates: start: 20190107
  9. TEDUGLUTIDE [Suspect]
     Active Substance: TEDUGLUTIDE
     Indication: SHORT-BOWEL SYNDROME
     Dosage: 5 MILLIGRAM, QD
     Route: 058
     Dates: start: 20181229, end: 20201016
  10. TEDUGLUTIDE [Suspect]
     Active Substance: TEDUGLUTIDE
     Dosage: 0.500 (UNIT UNKNOWN), QD
     Route: 058
     Dates: start: 20190107
  11. TEDUGLUTIDE [Suspect]
     Active Substance: TEDUGLUTIDE
     Dosage: 0.500 (UNIT UNKNOWN), QD
     Route: 058
     Dates: start: 20190107
  12. TEDUGLUTIDE [Suspect]
     Active Substance: TEDUGLUTIDE
     Dosage: 3.39 UNIT: UNKNOWN, QD
     Route: 058
     Dates: start: 20161028, end: 20200902

REACTIONS (4)
  - Death [Fatal]
  - Bacteraemia [Not Recovered/Not Resolved]
  - Vascular device infection [Unknown]
  - Acne [Unknown]

NARRATIVE: CASE EVENT DATE: 20200810
